FAERS Safety Report 6016248-9 (Version None)
Quarter: 2008Q4

REPORT INFORMATION
  Report Type: 
  Country: None (occurrence: None)
  Receive Date: 20081222
  Receipt Date: 20081202
  Transmission Date: 20090506
  Serious: Yes (Other)
  Sender: FDA-Public Use
  Company Number: US-BAXTER-2008BH013289

PATIENT
  Age: 56 Year
  Sex: Male

DRUGS (1)
  1. GAMMAGARD LIQUID [Suspect]
     Indication: ACUTE LEUKAEMIA
     Route: 042
     Dates: start: 20080101, end: 20080101

REACTIONS (1)
  - HAEMOLYSIS [None]
